FAERS Safety Report 14576913 (Version 1)
Quarter: 2018Q1

REPORT INFORMATION
  Report Type: Spontaneous
  Country: US (occurrence: US)
  Receive Date: 20180224
  Receipt Date: 20180224
  Transmission Date: 20180509
  Serious: Yes (Hospitalization)
  Sender: FDA-Public Use
  Company Number: None

PATIENT
  Age: 49 Year
  Sex: Male
  Weight: 81.6 kg

DRUGS (1)
  1. TEMOZOLOMIDE. [Suspect]
     Active Substance: TEMOZOLOMIDE
     Dates: end: 20180120

REACTIONS (5)
  - Cholelithiasis [None]
  - Lipase increased [None]
  - Abdominal pain upper [None]
  - Nausea [None]
  - Pancreatitis [None]

NARRATIVE: CASE EVENT DATE: 20180120
